FAERS Safety Report 6138914-7 (Version None)
Quarter: 2009Q1

REPORT INFORMATION
  Report Type: 
  Country: None (occurrence: None)
  Receive Date: 20090327
  Receipt Date: 20090311
  Transmission Date: 20090719
  Serious: Yes (Disabling)
  Sender: FDA-Public Use
  Company Number: 090318-0000542

PATIENT
  Sex: Male

DRUGS (3)
  1. INDOCIN [Suspect]
     Indication: PATENT DUCTUS ARTERIOSUS
     Dosage: 0.2 MG/KG;QD;IVDRP; 0.1 MG/KG;QD;IVDRP
     Route: 041
  2. INDOCIN [Suspect]
     Indication: PATENT DUCTUS ARTERIOSUS
     Dosage: 0.2 MG/KG;QD;IVDRP; 0.1 MG/KG;QD;IVDRP
     Route: 041
  3. FUROSEMIDE [Suspect]
     Indication: DRUG USE FOR UNKNOWN INDICATION
     Dosage: 0.5 MG/KG; QD; IV
     Route: 042

REACTIONS (1)
  - KERNICTERUS [None]
